FAERS Safety Report 4370779-6 (Version None)
Quarter: 2004Q2

REPORT INFORMATION
  Report Type: 
  Country: None (occurrence: None)
  Receive Date: 20040527
  Receipt Date: 20040511
  Transmission Date: 20050107
  Serious: Yes (Hospitalization)
  Sender: FDA-Public Use
  Company Number: FR_040504093

PATIENT
  Age: 79 Year
  Sex: Male

DRUGS (10)
  1. HUMALOG [Suspect]
     Dates: end: 20040312
  2. HUMULIN R [Suspect]
     Dates: end: 20040312
  3. AUGMENTIN [Concomitant]
  4. ASPIRIN [Concomitant]
  5. ZOCOR [Concomitant]
  6. ATACAND [Concomitant]
  7. LEVOTHYROX (LEVOTHYROXINE SODIUM) [Concomitant]
  8. ALLOPURINOL [Concomitant]
  9. LASIX [Concomitant]
  10. PLAVIX [Concomitant]

REACTIONS (1)
  - THROMBOCYTOPENIC PURPURA [None]
